FAERS Safety Report 18464516 (Version 5)
Quarter: 2024Q1

REPORT INFORMATION
  Report Type: Spontaneous
  Country: US (occurrence: US)
  Receive Date: 20201104
  Receipt Date: 20240214
  Transmission Date: 20240409
  Serious: Yes (Other)
  Sender: FDA-Public Use
  Company Number: US-PFIZER INC-2020426394

PATIENT
  Age: 43 Year
  Sex: Male
  Weight: 83.2 kg

DRUGS (3)
  1. XYNTHA [Suspect]
     Active Substance: ANTIHEMOPHILIC FACTOR, HUMAN RECOMBINANT RESIDUES 743-1636 DELETED
     Indication: Haemarthrosis
     Dosage: 2000 IU 40-50 UNITS/KG =3320-4650 UNITS
     Route: 040
  2. XYNTHA [Suspect]
     Active Substance: ANTIHEMOPHILIC FACTOR, HUMAN RECOMBINANT RESIDUES 743-1636 DELETED
     Indication: Haemorrhage
  3. XYNTHA [Suspect]
     Active Substance: ANTIHEMOPHILIC FACTOR, HUMAN RECOMBINANT RESIDUES 743-1636 DELETED
     Indication: Joint injury

REACTIONS (4)
  - Haemorrhage [Unknown]
  - Dental operation [Unknown]
  - Tooth disorder [Unknown]
  - Product prescribing error [Unknown]
